FAERS Safety Report 9098993 (Version 1)
Quarter: 2013Q1

REPORT INFORMATION
  Report Type: Spontaneous
  Country: US (occurrence: US)
  Receive Date: 20130213
  Receipt Date: 20130213
  Transmission Date: 20140127
  Serious: Yes (Other)
  Sender: FDA-Public Use
  Company Number: US-ASTELLAS-2013US001467

PATIENT
  Sex: Female
  Weight: 75 kg

DRUGS (4)
  1. PROGRAF [Suspect]
     Indication: RENAL TRANSPLANT
     Dosage: 1 MG, BID
     Route: 048
     Dates: start: 20100116
  2. PROGRAF [Suspect]
     Indication: PANCREAS TRANSPLANT
     Dosage: 5 MG, BID
     Route: 048
     Dates: start: 20100116
  3. TACROLIMUS [Suspect]
     Indication: RENAL TRANSPLANT
     Dosage: UNK
     Route: 065
  4. TACROLIMUS [Suspect]
     Indication: PANCREAS TRANSPLANT

REACTIONS (4)
  - Off label use [Unknown]
  - Renal disorder [Unknown]
  - Transplant failure [Unknown]
  - Cytomegalovirus infection [Unknown]
